FAERS Safety Report 21311613 (Version 3)
Quarter: 2022Q3

REPORT INFORMATION
  Report Type: Spontaneous
  Country: US (occurrence: US)
  Receive Date: 20220909
  Receipt Date: 20220926
  Transmission Date: 20221027
  Serious: No
  Sender: FDA-Public Use
  Company Number: US-AMGEN-USASP2022153566

PATIENT
  Age: 51 Year
  Sex: Female
  Weight: 60 kg

DRUGS (1)
  1. VECTIBIX [Suspect]
     Active Substance: PANITUMUMAB
     Indication: Product used for unknown indication
     Dosage: 400 MILLIGRAM, Q2WK
     Route: 065

REACTIONS (5)
  - Dermatitis acneiform [Unknown]
  - Acne pustular [Unknown]
  - Pruritus [Unknown]
  - Skin weeping [Unknown]
  - Paronychia [Unknown]
